FAERS Safety Report 25885185 (Version 1)
Quarter: 2025Q4

REPORT INFORMATION
  Report Type: Spontaneous
  Country: US (occurrence: None)
  Receive Date: 20251004
  Receipt Date: 20251004
  Transmission Date: 20260118
  Serious: Yes (Hospitalization)
  Sender: FDA-CTU
  Company Number: None

PATIENT
  Age: 74 Year
  Sex: Female
  Weight: 60.56 kg

DRUGS (3)
  1. CYTARABINE [Suspect]
     Active Substance: CYTARABINE
     Dates: end: 20250328
  2. PONATINIB [Suspect]
     Active Substance: PONATINIB
     Indication: Disseminated intravascular coagulation
     Dates: end: 20250330
  3. PREDNISONE [Suspect]
     Active Substance: PREDNISONE
     Dates: end: 20250330

REACTIONS (5)
  - Wound haemorrhage [None]
  - Skin weeping [None]
  - Platelet count decreased [None]
  - Blood fibrinogen decreased [None]
  - Disseminated intravascular coagulation [None]

NARRATIVE: CASE EVENT DATE: 20250330
